FAERS Safety Report 18251311 (Version 5)
Quarter: 2021Q1

REPORT INFORMATION
  Report Type: Report from Study
  Country: None (occurrence: US)
  Receive Date: 20200910
  Receipt Date: 20210304
  Transmission Date: 20210419
  Serious: Yes (Other)
  Sender: FDA-Public Use
  Company Number: US-ABBVIE-20K-163-3282030-00

PATIENT
  Age: 58 Year
  Sex: Female

DRUGS (5)
  1. HUMIRA [Suspect]
     Active Substance: ADALIMUMAB
     Indication: RHEUMATOID ARTHRITIS
     Dosage: CITRATE FREE
     Route: 058
     Dates: end: 2020
  2. HUMIRA [Suspect]
     Active Substance: ADALIMUMAB
     Indication: RHEUMATOID ARTHRITIS
     Route: 058
  3. HUMIRA [Suspect]
     Active Substance: ADALIMUMAB
     Route: 058
  4. HUMIRA [Suspect]
     Active Substance: ADALIMUMAB
     Dosage: CITRATE FREE
     Route: 058
     Dates: start: 202009
  5. ENBREL [Suspect]
     Active Substance: ETANERCEPT
     Indication: PRODUCT USED FOR UNKNOWN INDICATION
     Route: 065
     Dates: start: 2020

REACTIONS (14)
  - Swelling [Unknown]
  - Influenza like illness [Unknown]
  - Injection site pain [Not Recovered/Not Resolved]
  - Drug ineffective [Unknown]
  - Drug ineffective [Not Recovered/Not Resolved]
  - Asthma [Unknown]
  - Pain [Not Recovered/Not Resolved]
  - Alopecia [Unknown]
  - Bronchitis [Unknown]
  - Arthralgia [Recovering/Resolving]
  - Illness [Unknown]
  - Glaucoma [Recovering/Resolving]
  - Gait disturbance [Recovering/Resolving]
  - Inflammation [Unknown]

NARRATIVE: CASE EVENT DATE: 201911
